FAERS Safety Report 9548495 (Version 1)
Quarter: 2013Q3

REPORT INFORMATION
  Report Type: Spontaneous
  Country: US (occurrence: None)
  Receive Date: 20130923
  Receipt Date: 20130923
  Transmission Date: 20140515
  Serious: No
  Sender: FDA-Public Use
  Company Number: None

PATIENT
  Age: 55 Year
  Sex: Male
  Weight: 73.94 kg

DRUGS (1)
  1. REPAGLINIDE [Suspect]
     Indication: BLOOD GLUCOSE INCREASED
     Dosage: TAKEN BY MOUTH

REACTIONS (5)
  - Malaise [None]
  - Abdominal pain upper [None]
  - Nausea [None]
  - Headache [None]
  - Product substitution issue [None]
